FAERS Safety Report 5258928-9 (Version None)
Quarter: 2007Q1

REPORT INFORMATION
  Report Type: 
  Country: None (occurrence: None)
  Receive Date: 20061117
  Receipt Date: 20060403
  Transmission Date: 20070707
  Serious: Yes (Other)
  Sender: FDA-Public Use
  Company Number: US-JNJFOC-20060101061

PATIENT
  Age: 81 Year
  Sex: Male
  Weight: 91.6266 kg

DRUGS (5)
  1. LEVAQUIN [Suspect]
     Indication: EPIDIDYMITIS
     Dosage: 750 MG, 1 IN 1 DAY, ORAL
     Route: 048
     Dates: start: 20051202, end: 20051207
  2. LEVAQUIN [Suspect]
     Indication: URINARY TRACT INFECTION
     Dosage: 750 MG, 1 IN 1 DAY, ORAL
     Route: 048
     Dates: start: 20051202, end: 20051207
  3. ACIPHEX [Concomitant]
  4. PLAVIX [Concomitant]
  5. HCTC (HYDROCHLOROTHIAZIDE) TABLET [Concomitant]

REACTIONS (4)
  - INSOMNIA [None]
  - MUSCULOSKELETAL PAIN [None]
  - PAIN IN EXTREMITY [None]
  - TENDON RUPTURE [None]
